FAERS Safety Report 5642102-8 (Version None)
Quarter: 2008Q1

REPORT INFORMATION
  Report Type: 
  Country: None (occurrence: None)
  Receive Date: 20080131
  Receipt Date: 20071206
  Transmission Date: 20080703
  Serious: No
  Sender: FDA-Public Use
  Company Number: US200712000366

PATIENT
  Age: 56 Year
  Sex: Male
  Weight: 107 kg

DRUGS (5)
  1. BYETTA [Suspect]
     Indication: TYPE 2 DIABETES MELLITUS
     Dosage: 5 UG, 2/D, SUBCUTANEOUS ; 10 UG, 2/D, SUBCUTANEOUS
     Route: 058
     Dates: start: 20070101, end: 20071101
  2. BYETTA [Suspect]
     Indication: TYPE 2 DIABETES MELLITUS
     Dosage: 5 UG, 2/D, SUBCUTANEOUS ; 10 UG, 2/D, SUBCUTANEOUS
     Route: 058
     Dates: start: 20071129
  3. GLYBURIDE [Concomitant]
  4. METFORMIN HCL [Concomitant]
  5. ACTOS [Concomitant]

REACTIONS (3)
  - ABDOMINAL DISTENSION [None]
  - FATIGUE [None]
  - INJECTION SITE HAEMORRHAGE [None]
